FAERS Safety Report 6341353-7 (Version None)
Quarter: 2009Q3

REPORT INFORMATION
  Report Type: 
  Country: None (occurrence: None)
  Receive Date: 20090904
  Receipt Date: 20090828
  Transmission Date: 20100115
  Serious: Yes (Hospitalization)
  Sender: FDA-Public Use
  Company Number: PHHO2009BE00942

PATIENT
  Sex: Female

DRUGS (13)
  1. CGS 20267 T30748+ [Suspect]
     Indication: BREAST CANCER
     Dosage: 2.5 MG, QD
     Route: 048
     Dates: start: 20040219
  2. ZOLEDRONIC ACID [Suspect]
     Dosage: UNK
     Route: 042
     Dates: start: 20040226
  3. CALCIUM [Concomitant]
  4. VITAMIN D [Concomitant]
  5. FRAXIPARINE [Concomitant]
  6. CLEXANE [Concomitant]
     Dosage: 0.4 MG, UNK
  7. CARDIOASPIRINE [Concomitant]
     Dosage: 100 MG, QD
     Route: 048
  8. MOXONIDINE [Concomitant]
     Indication: HYPERTENSION
     Dosage: 0.2 MG, QD
     Route: 048
  9. CORUNO [Concomitant]
     Dosage: 16 MG, QD
     Route: 048
  10. LIPITOR [Concomitant]
     Indication: HYPERCHOLESTEROLAEMIA
     Dosage: 40 MG, QD
     Route: 048
  11. AMLODIPINE [Concomitant]
     Indication: HYPERTENSION
     Dosage: 5 MG, QD
     Route: 048
  12. PLAVIX [Concomitant]
     Dosage: 75 MG, QD
     Route: 048
  13. EMCONCOR [Concomitant]
     Indication: HYPERTENSION
     Dosage: 10 MG, QD
     Route: 048

REACTIONS (3)
  - ARTHRALGIA [None]
  - KNEE ARTHROPLASTY [None]
  - OSTEOARTHRITIS [None]
